FAERS Safety Report 25509815 (Version 1)
Quarter: 2025Q3

REPORT INFORMATION
  Report Type: Spontaneous
  Country: EU (occurrence: EU)
  Receive Date: 20250703
  Receipt Date: 20250703
  Transmission Date: 20251021
  Serious: Yes (Hospitalization)
  Sender: MYLAN
  Company Number: None

PATIENT
  Age: 58 Year
  Sex: Male

DRUGS (4)
  1. PREGABALIN [Suspect]
     Active Substance: PREGABALIN
     Indication: Product used for unknown indication
  2. METHADONE [Suspect]
     Active Substance: METHADONE HYDROCHLORIDE
     Indication: Product used for unknown indication
  3. DIAZEPAM [Suspect]
     Active Substance: DIAZEPAM
     Indication: Product used for unknown indication
  4. COCAINE [Suspect]
     Active Substance: COCAINE
     Indication: Product used for unknown indication

REACTIONS (2)
  - Substance abuser [Not Recovered/Not Resolved]
  - Respiratory failure [Recovered/Resolved]

NARRATIVE: CASE EVENT DATE: 20230101
